FAERS Safety Report 10758366 (Version 1)
Quarter: 2015Q1

REPORT INFORMATION
  Report Type: Spontaneous
  Country: US (occurrence: US)
  Receive Date: 20150203
  Receipt Date: 20150203
  Transmission Date: 20150721
  Serious: Yes (Hospitalization, Other)
  Sender: FDA-Public Use
  Company Number: US-ASTRAZENECA-2015SE08798

PATIENT
  Sex: Male

DRUGS (7)
  1. UNSPECIFIED STATIN DRUGS [Suspect]
     Active Substance: UNSPECIFIED INGREDIENT
  2. LIPITOR [Suspect]
     Active Substance: ATORVASTATIN CALCIUM
  3. LIPITOR [Suspect]
     Active Substance: ATORVASTATIN CALCIUM
  4. LIPITOR [Suspect]
     Active Substance: ATORVASTATIN CALCIUM
  5. CRESTOR [Suspect]
     Active Substance: ROSUVASTATIN CALCIUM
     Route: 048
  6. PAXIL [Suspect]
     Active Substance: PAROXETINE HYDROCHLORIDE
  7. ZOLOFT [Suspect]
     Active Substance: SERTRALINE HYDROCHLORIDE

REACTIONS (14)
  - Poisoning [Unknown]
  - Dizziness [Unknown]
  - Myocardial infarction [Unknown]
  - Delirium [Unknown]
  - Drug ineffective [Unknown]
  - Muscle injury [Unknown]
  - Feeling abnormal [Unknown]
  - Nervous system disorder [Unknown]
  - Ill-defined disorder [Unknown]
  - Asthenia [Not Recovered/Not Resolved]
  - Fatigue [Not Recovered/Not Resolved]
  - Depressed mood [Unknown]
  - Vertigo [Unknown]
  - Adverse event [Unknown]
